FAERS Safety Report 8023975-0 (Version None)
Quarter: 2011Q4

REPORT INFORMATION
  Report Type: 
  Country: None (occurrence: None)
  Receive Date: 20111230
  Receipt Date: 20111221
  Transmission Date: 20120403
  Serious: Yes (Other)
  Sender: FDA-Public Use
  Company Number: JPI-P-018887

PATIENT
  Age: 21 Year
  Sex: Male

DRUGS (1)
  1. XYREM [Suspect]
     Indication: CATAPLEXY
     Dosage: 4.5 GM (2.25 GM, 2 IN 1 D), ORAL
     Route: 048
     Dates: start: 20090824

REACTIONS (4)
  - CONVULSION [None]
  - ROAD TRAFFIC ACCIDENT [None]
  - POTENTIATING DRUG INTERACTION [None]
  - DRUG INEFFECTIVE [None]
